FAERS Safety Report 14823418 (Version 1)
Quarter: 2018Q2

REPORT INFORMATION
  Report Type: Report from Study
  Country: None (occurrence: RO)
  Receive Date: 20180427
  Receipt Date: 20180427
  Transmission Date: 20180711
  Serious: Yes (Other)
  Sender: FDA-Public Use
  Company Number: RO-ABBVIE-18K-135-2338191-00

PATIENT
  Age: 47 Year
  Sex: Male

DRUGS (4)
  1. PENTOXI RETARD [Concomitant]
     Active Substance: PENTOXIFYLLINE
     Indication: PERIPHERAL VENOUS DISEASE
     Route: 048
  2. DUODOPA [Suspect]
     Active Substance: CARBIDOPA\LEVODOPA
     Indication: PARKINSON^S DISEASE
     Dosage: MD=8.50??CD=4.20??ED=3.40??NRED=5;
     Route: 050
     Dates: start: 20131126
  3. INDAPAMID [Concomitant]
     Active Substance: INDAPAMIDE
     Indication: HYPERTENSION
     Route: 048
  4. ISICOM [Concomitant]
     Active Substance: CARBIDOPA\LEVODOPA
     Indication: PARKINSON^S DISEASE
     Route: 048

REACTIONS (3)
  - Depression [Recovering/Resolving]
  - Generalised anxiety disorder [Recovering/Resolving]
  - Organic brain syndrome [Recovering/Resolving]

NARRATIVE: CASE EVENT DATE: 20180316
